FAERS Safety Report 11777787 (Version 1)
Quarter: 2015Q4

REPORT INFORMATION
  Report Type: Report from Study
  Country: US (occurrence: US)
  Receive Date: 20151125
  Receipt Date: 20151125
  Transmission Date: 20160304
  Serious: Yes (Other)
  Sender: FDA-Public Use
  Company Number: US-ABBVIE-15K-163-1505866-00

PATIENT
  Age: 34 Year
  Sex: Female

DRUGS (1)
  1. HUMIRA [Suspect]
     Active Substance: ADALIMUMAB
     Indication: COLITIS ULCERATIVE
     Route: 058
     Dates: start: 20151112, end: 20151112

REACTIONS (4)
  - Ovariocentesis [Unknown]
  - Injection site pain [Recovered/Resolved]
  - Ovarian cyst ruptured [Unknown]
  - Abdominal pain [Unknown]

NARRATIVE: CASE EVENT DATE: 20151112
